FAERS Safety Report 9058500 (Version 1)
Quarter: 2013Q1

REPORT INFORMATION
  Report Type: Spontaneous
  Country: US (occurrence: None)
  Receive Date: 20130205
  Receipt Date: 20130205
  Transmission Date: 20140127
  Serious: No
  Sender: FDA-Public Use
  Company Number: None

PATIENT
  Age: 75 Year
  Sex: Male
  Weight: 97.2 kg

DRUGS (1)
  1. INSULIN RECOMBINANT HUMAN [Suspect]

REACTIONS (2)
  - Incorrect drug dosage form administered [None]
  - Blood glucose decreased [None]
